FAERS Safety Report 5669863-6 (Version None)
Quarter: 2008Q1

REPORT INFORMATION
  Report Type: 
  Country: None (occurrence: None)
  Receive Date: 20080317
  Receipt Date: 20080305
  Transmission Date: 20080703
  Serious: Yes (Other)
  Sender: FDA-Public Use
  Company Number: US-PFIZER INC-2008012166

PATIENT
  Sex: Female
  Weight: 108.9 kg

DRUGS (7)
  1. LYRICA [Suspect]
     Indication: NEURALGIA
     Route: 048
     Dates: start: 20080101, end: 20080201
  2. BUMEX [Concomitant]
  3. CALCIUM [Concomitant]
  4. ALL OTHER THERAPEUTIC PRODUCTS [Concomitant]
  5. TYLENOL (CAPLET) [Concomitant]
  6. ALLOPURINOL [Concomitant]
  7. METOPROLOL TARTRATE [Concomitant]

REACTIONS (7)
  - ANXIETY [None]
  - CONJUNCTIVITIS [None]
  - INSOMNIA [None]
  - NAUSEA [None]
  - OEDEMA PERIPHERAL [None]
  - PERIORBITAL OEDEMA [None]
  - SOMNOLENCE [None]
